FAERS Safety Report 7080372-2 (Version None)
Quarter: 2010Q4

REPORT INFORMATION
  Report Type: 
  Country: None (occurrence: None)
  Receive Date: 20101025
  Receipt Date: 20101008
  Transmission Date: 20110411
  Serious: Yes (Hospitalization)
  Sender: FDA-Public Use
  Company Number: 2010P1001893

PATIENT
  Sex: Female

DRUGS (1)
  1. FENTANYL [Suspect]
     Dosage: TDER
     Route: 062

REACTIONS (2)
  - HOSPITALISATION [None]
  - MALAISE [None]
